FAERS Safety Report 17199325 (Version 1)
Quarter: 2019Q4

REPORT INFORMATION
  Report Type: Spontaneous
  Country: US (occurrence: US)
  Receive Date: 20191225
  Receipt Date: 20191225
  Transmission Date: 20200122
  Serious: Yes (Hospitalization)
  Sender: FDA-Public Use
  Company Number: US-BAXTER-2019BAX025974

PATIENT
  Age: 27 Year
  Sex: Female

DRUGS (2)
  1. ETOPOSIDE. [Suspect]
     Active Substance: ETOPOSIDE
     Indication: OSTEOSARCOMA
     Route: 065
     Dates: start: 20191209
  2. IFEX [Suspect]
     Active Substance: IFOSFAMIDE
     Indication: OSTEOSARCOMA
     Route: 065
     Dates: start: 20191209

REACTIONS (5)
  - Renal tubular necrosis [Unknown]
  - Nephrogenic diabetes insipidus [Unknown]
  - Tubulointerstitial nephritis [Unknown]
  - Fanconi syndrome acquired [Unknown]
  - Proteinuria [Unknown]

NARRATIVE: CASE EVENT DATE: 20191213
